FAERS Safety Report 8158975-3 (Version None)
Quarter: 2012Q1

REPORT INFORMATION
  Report Type: 
  Country: None (occurrence: None)
  Receive Date: 20120223
  Receipt Date: 20120221
  Transmission Date: 20120608
  Serious: No
  Sender: FDA-Public Use
  Company Number: US-PFIZER INC-2012046685

PATIENT
  Sex: Male
  Weight: 74.83 kg

DRUGS (4)
  1. ATORVASTATIN CALCIUM [Suspect]
     Indication: BLOOD CHOLESTEROL INCREASED
     Dosage: 20 MG, DAILY
     Dates: start: 20120101, end: 20120101
  2. NEXIUM [Concomitant]
     Indication: GASTROOESOPHAGEAL REFLUX DISEASE
     Dosage: 40 MG, DAILY
  3. ATORVASTATIN CALCIUM [Suspect]
     Dosage: 20 MG, DAILY
     Dates: start: 20120201, end: 20120219
  4. ADVAIR DISKUS 100/50 [Concomitant]
     Indication: DYSPNOEA
     Dosage: [FLUTICASONE PROPIONATE 250]/[SALMETEROL 50 UG], 2X/DAY

REACTIONS (2)
  - PRURITUS [None]
  - RASH [None]
